FAERS Safety Report 16538562 (Version 1)
Quarter: 2019Q3

REPORT INFORMATION
  Report Type: Report from Study
  Country: CZ (occurrence: CZ)
  Receive Date: 20190708
  Receipt Date: 20190708
  Transmission Date: 20191004
  Serious: Yes (Other)
  Sender: FDA-Public Use
  Company Number: CZ-ROCHE-2347117

PATIENT
  Age: 56 Year
  Sex: Female
  Weight: 75 kg

DRUGS (30)
  1. RANITAL [RANITIDINE HYDROCHLORIDE] [Concomitant]
     Route: 042
     Dates: start: 20190403, end: 20190403
  2. RANITAL [RANITIDINE HYDROCHLORIDE] [Concomitant]
     Route: 042
     Dates: start: 20190313, end: 20190313
  3. DITHIADEN [Concomitant]
     Active Substance: BISULEPIN
     Route: 042
     Dates: start: 20190313, end: 20190313
  4. DITHIADEN [Concomitant]
     Active Substance: BISULEPIN
     Route: 042
     Dates: start: 20190515, end: 20190515
  5. SOLU-MEDROL [Concomitant]
     Active Substance: METHYLPREDNISOLONE SODIUM SUCCINATE
     Route: 042
     Dates: start: 20190515, end: 20190515
  6. EUTHYROX [Concomitant]
     Active Substance: LEVOTHYROXINE SODIUM
     Dosage: ONGOING
     Route: 065
     Dates: start: 2016
  7. XYZAL [Concomitant]
     Active Substance: LEVOCETIRIZINE DIHYDROCHLORIDE
     Dosage: ONGOING
     Route: 065
     Dates: start: 2015
  8. PARALEN [PARACETAMOL] [Concomitant]
     Dosage: ONGOING
     Route: 065
     Dates: start: 20190302
  9. NALGESIN [NAPROXEN SODIUM] [Concomitant]
     Dosage: ONGOING
     Route: 065
     Dates: start: 20190302
  10. XARELTO [Concomitant]
     Active Substance: RIVAROXABAN
     Dosage: ONGOING
     Route: 065
     Dates: start: 20190426
  11. MONTELUCAST [Concomitant]
     Active Substance: MONTELUKAST SODIUM
     Indication: PROPHYLAXIS
     Route: 065
     Dates: start: 20190605, end: 20190605
  12. RANITAL [RANITIDINE HYDROCHLORIDE] [Concomitant]
     Indication: PROPHYLAXIS
     Route: 065
     Dates: start: 20190605, end: 20190605
  13. ISATUXIMAB [Suspect]
     Active Substance: ISATUXIMAB
     Indication: NEOPLASM MALIGNANT
     Dosage: MOST RECENT DOSE ON 05/JUN/2019
     Route: 042
     Dates: start: 20190219
  14. PARAMAX [PARACETAMOL] [Concomitant]
     Route: 048
     Dates: start: 20190424, end: 20190424
  15. MONTELUCAST [Concomitant]
     Active Substance: MONTELUKAST SODIUM
     Route: 048
     Dates: start: 20190515, end: 20190515
  16. RANITAL [RANITIDINE HYDROCHLORIDE] [Concomitant]
     Route: 042
     Dates: start: 20190424, end: 20190424
  17. RANITAL [RANITIDINE HYDROCHLORIDE] [Concomitant]
     Route: 042
     Dates: start: 20190515, end: 20190515
  18. DITHIADEN [Concomitant]
     Active Substance: BISULEPIN
     Indication: PROPHYLAXIS
     Route: 065
     Dates: start: 20190605, end: 20190605
  19. SOLU-MEDROL [Concomitant]
     Active Substance: METHYLPREDNISOLONE SODIUM SUCCINATE
     Route: 042
     Dates: start: 20190403, end: 20190403
  20. SOLU-MEDROL [Concomitant]
     Active Substance: METHYLPREDNISOLONE SODIUM SUCCINATE
     Route: 042
     Dates: start: 20190424, end: 20190424
  21. PARAMAX [PARACETAMOL] [Concomitant]
     Route: 048
     Dates: start: 20190313, end: 20190313
  22. MONTELUCAST [Concomitant]
     Active Substance: MONTELUKAST SODIUM
     Route: 048
     Dates: start: 20190424, end: 20190424
  23. DITHIADEN [Concomitant]
     Active Substance: BISULEPIN
     Route: 042
     Dates: start: 20190424, end: 20190424
  24. SOLU-MEDROL [Concomitant]
     Active Substance: METHYLPREDNISOLONE SODIUM SUCCINATE
     Indication: PROPHYLAXIS
     Route: 065
     Dates: start: 20190605, end: 20190605
  25. SERETIDE [Concomitant]
     Active Substance: FLUTICASONE PROPIONATE\SALMETEROL XINAFOATE
  26. PARAMAX [PARACETAMOL] [Concomitant]
     Route: 065
     Dates: start: 20190605, end: 20190605
  27. PARAMAX [PARACETAMOL] [Concomitant]
     Route: 048
     Dates: start: 20190515, end: 20190515
  28. SOLU-MEDROL [Concomitant]
     Active Substance: METHYLPREDNISOLONE SODIUM SUCCINATE
     Route: 042
     Dates: start: 20190313, end: 20190313
  29. ATEZOLIZUMAB. [Suspect]
     Active Substance: ATEZOLIZUMAB
     Indication: NEOPLASM MALIGNANT
     Dosage: MOST RECENT DOSE ON 05/JUN/2019
     Route: 042
     Dates: start: 20190219
  30. DITHIADEN [Concomitant]
     Active Substance: BISULEPIN
     Route: 042
     Dates: start: 20190403, end: 20190403

REACTIONS (1)
  - Adrenal insufficiency [Recovered/Resolved]

NARRATIVE: CASE EVENT DATE: 20190606
